FAERS Safety Report 19007034 (Version 1)
Quarter: 2021Q1

REPORT INFORMATION
  Report Type: Spontaneous
  Country: CN (occurrence: CN)
  Receive Date: 20210315
  Receipt Date: 20210315
  Transmission Date: 20210420
  Serious: Yes (Life-Threatening, Other)
  Sender: FDA-Public Use
  Company Number: CN-SA-2021SA084321

PATIENT
  Age: 63 Year
  Sex: Male
  Weight: 66.5 kg

DRUGS (2)
  1. THYMOGLOBULINE [Suspect]
     Active Substance: LAPINE T-LYMPHOCYTE IMMUNE GLOBULIN
     Indication: APLASTIC ANAEMIA
     Dosage: 200 MG, QD
     Route: 041
     Dates: start: 20210127, end: 20210131
  2. NORMAL SALINE [Suspect]
     Active Substance: SODIUM CHLORIDE
     Dosage: 250 ML, QD
     Route: 041
     Dates: start: 20210127, end: 20210131

REACTIONS (3)
  - Temperature intolerance [Recovering/Resolving]
  - Chills [Recovering/Resolving]
  - Body temperature increased [Recovering/Resolving]

NARRATIVE: CASE EVENT DATE: 20210127
